FAERS Safety Report 8986222 (Version 1)
Quarter: 2012Q4

REPORT INFORMATION
  Report Type: Spontaneous
  Country: US (occurrence: None)
  Receive Date: 20121219
  Receipt Date: 20121219
  Transmission Date: 20130627
  Serious: Yes (Other)
  Sender: FDA-Public Use
  Company Number: None

PATIENT
  Age: 69 Year
  Sex: Female

DRUGS (5)
  1. ENBREL [Suspect]
     Route: 058
     Dates: start: 20121011
  2. ENBREL [Suspect]
     Dates: start: 20121014
  3. ENBREL [Suspect]
     Dates: start: 20121018
  4. ENBREL [Suspect]
     Dates: start: 20121021
  5. ENBREL [Suspect]
     Dates: start: 20121025

REACTIONS (3)
  - Rash [None]
  - Blister [None]
  - Skin exfoliation [None]
